FAERS Safety Report 15937932 (Version 1)
Quarter: 2019Q1

REPORT INFORMATION
  Report Type: Spontaneous
  Country: US (occurrence: US)
  Receive Date: 20190208
  Receipt Date: 20190208
  Transmission Date: 20190417
  Serious: Yes (Other)
  Sender: FDA-Public Use
  Company Number: US-PFIZER INC-2019055733

PATIENT
  Age: 51 Year
  Sex: Male

DRUGS (10)
  1. BUPRENORPHINE. [Suspect]
     Active Substance: BUPRENORPHINE
     Dosage: UNK
     Route: 045
  2. COCAINE [Suspect]
     Active Substance: COCAINE
     Dosage: UNK
     Route: 045
  3. TRAZODONE [Concomitant]
     Active Substance: TRAZODONE HYDROCHLORIDE
     Indication: HOME CARE
     Dosage: 100 MG, UNK NIGHTLY
  4. GABAPENTIN. [Concomitant]
     Active Substance: GABAPENTIN
     Indication: ANXIETY
     Dosage: 10 DF, UNK
  5. GABAPENTIN. [Concomitant]
     Active Substance: GABAPENTIN
     Dosage: 600 MG, UNK (CRUSHING AND INSUFFLATING THREE TO FOUR 600-MG TABLETS AT 2-HOUR INTERVALS, ^BINGES^)
     Route: 045
  6. GABAPENTIN. [Concomitant]
     Active Substance: GABAPENTIN
     Indication: PAIN
     Dosage: 100 MG, 3X/DAY
  7. DIVALPROEX [Concomitant]
     Active Substance: DIVALPROEX SODIUM
     Indication: HOME CARE
     Dosage: 1000 MG, UNK NIGHTLY
  8. SERTRALINE [Concomitant]
     Active Substance: SERTRALINE HYDROCHLORIDE
     Indication: HOME CARE
     Dosage: 50 MG, DAILY
  9. HEROIN [Suspect]
     Active Substance: DIAMORPHINE
     Dosage: UNK
     Route: 045
  10. GABAPENTIN. [Concomitant]
     Active Substance: GABAPENTIN
     Indication: SUICIDAL IDEATION
     Dosage: 300 MG, 3X/DAY

REACTIONS (2)
  - Toxicity to various agents [Unknown]
  - Drug abuse [Unknown]
